FAERS Safety Report 5812307-1 (Version None)
Quarter: 2008Q3

REPORT INFORMATION
  Report Type: 
  Country: None (occurrence: None)
  Receive Date: 20080714
  Receipt Date: 20080630
  Transmission Date: 20090109
  Serious: Yes (Other)
  Sender: FDA-Public Use
  Company Number: 08-001067

PATIENT
  Age: 54 Year
  Sex: Female
  Weight: 69.4 kg

DRUGS (6)
  1. TACLONEX [Suspect]
     Indication: PSORIASIS
     Dosage: QD, TOPICAL
     Route: 061
     Dates: start: 20070125, end: 20080623
  2. DOVONEX [Suspect]
     Indication: PSORIASIS
     Dosage: QD, TOPICAL
     Route: 061
     Dates: start: 20080101, end: 20080101
  3. SYNTHROID (LEVOTHYROXINE SODIUM), 50 MCG [Concomitant]
  4. MULTIVITAMIN /00831701/ (VITAMINS NOS) [Concomitant]
  5. CALCIUM (CALCIUM) [Concomitant]
  6. VITAMIN B6 [Concomitant]

REACTIONS (6)
  - ALANINE AMINOTRANSFERASE INCREASED [None]
  - ASPARTATE AMINOTRANSFERASE INCREASED [None]
  - DRY SKIN [None]
  - HEPATIC ENZYME INCREASED [None]
  - RASH [None]
  - WEIGHT INCREASED [None]
